FAERS Safety Report 8358184-9 (Version None)
Quarter: 2012Q2

REPORT INFORMATION
  Report Type: 
  Country: None (occurrence: None)
  Receive Date: 20120514
  Receipt Date: 20120507
  Transmission Date: 20120825
  Serious: Yes (Other)
  Sender: FDA-Public Use
  Company Number: US-GLAXOSMITHKLINE-A0969674A

PATIENT
  Sex: Female

DRUGS (2)
  1. TYKERB [Suspect]
     Indication: BREAST CANCER
     Dosage: 1250MGD PER DAY
     Route: 048
  2. XELODA [Suspect]
     Indication: BREAST CANCER
     Route: 065

REACTIONS (5)
  - LOCALISED INFECTION [None]
  - PALMAR-PLANTAR ERYTHRODYSAESTHESIA SYNDROME [None]
  - NAIL INFECTION [None]
  - PAIN [None]
  - GAIT DISTURBANCE [None]
